FAERS Safety Report 9473030 (Version 1)
Quarter: 2013Q3

REPORT INFORMATION
  Report Type: Spontaneous
  Country: US (occurrence: US)
  Receive Date: 20130823
  Receipt Date: 20130823
  Transmission Date: 20140515
  Serious: No
  Sender: FDA-Public Use
  Company Number: US-BRISTOL-MYERS SQUIBB COMPANY-17348491

PATIENT
  Age: 60 Year
  Sex: Male
  Weight: 80.72 kg

DRUGS (5)
  1. SPRYCEL [Suspect]
     Indication: CHRONIC MYELOID LEUKAEMIA
     Dosage: \70MG-140MG IN MRNG,70MG AT NIGHT?DOSE REDUCED ON OCT12-70MG
     Dates: start: 201208
  2. NEURONTIN [Concomitant]
  3. FLOMAX [Concomitant]
  4. MOTRIN [Concomitant]
     Indication: BACK PAIN
     Dosage: 1DF=E 8-1600MG/DAY
  5. EYE DROPS [Concomitant]

REACTIONS (1)
  - Diarrhoea [Recovering/Resolving]
